FAERS Safety Report 16733726 (Version 1)
Quarter: 2019Q3

REPORT INFORMATION
  Report Type: Spontaneous
  Country: US (occurrence: US)
  Receive Date: 20190823
  Receipt Date: 20190823
  Transmission Date: 20191005
  Serious: Yes (Other)
  Sender: FDA-Public Use
  Company Number: US-SA-2019SA226061

PATIENT
  Age: 22 Year
  Sex: Female

DRUGS (4)
  1. XYZAL [Suspect]
     Active Substance: LEVOCETIRIZINE DIHYDROCHLORIDE
     Indication: URTICARIA
     Dosage: 0.5 DF, HS
  2. XYZAL [Suspect]
     Active Substance: LEVOCETIRIZINE DIHYDROCHLORIDE
     Indication: PRURITUS
     Dosage: UNK UNK, UNK
     Route: 065
  3. XYZAL [Suspect]
     Active Substance: LEVOCETIRIZINE DIHYDROCHLORIDE
     Indication: ILL-DEFINED DISORDER
     Dosage: 1 DF, HS
  4. XYZAL [Suspect]
     Active Substance: LEVOCETIRIZINE DIHYDROCHLORIDE
     Indication: ABDOMINAL DISTENSION

REACTIONS (6)
  - Fatigue [Unknown]
  - Wrong technique in product usage process [Unknown]
  - Somnolence [Unknown]
  - Therapeutic response delayed [Unknown]
  - Unresponsive to stimuli [Unknown]
  - Reduced facial expression [Unknown]
